FAERS Safety Report 7769274-3 (Version None)
Quarter: 2011Q3

REPORT INFORMATION
  Report Type: 
  Country: None (occurrence: None)
  Receive Date: 20110922
  Receipt Date: 20110919
  Transmission Date: 20111222
  Serious: Yes (Hospitalization)
  Sender: FDA-Public Use
  Company Number: US-ROCHE-801432

PATIENT
  Sex: Male
  Weight: 70.9 kg

DRUGS (12)
  1. BEVACIZUMAB [Suspect]
     Indication: OLIGODENDROGLIOMA
     Route: 042
     Dates: start: 20110621, end: 20110816
  2. ZANTAC [Concomitant]
  3. PERCOCET [Concomitant]
     Dosage: 10/325
     Route: 048
  4. KEPPRA [Concomitant]
  5. SENNA [Concomitant]
     Dosage: 1 IN AM AND 2 IN PM
  6. ATIVAN [Concomitant]
     Route: 048
  7. CARBOPLATIN [Suspect]
     Indication: OLIGODENDROGLIOMA
     Route: 065
  8. ZOLPIDEM [Concomitant]
     Dosage: EVERY NIGHT (QHS)
  9. IRINOTECAN HCL [Suspect]
     Indication: OLIGODENDROGLIOMA
     Route: 042
     Dates: start: 20110621, end: 20110816
  10. MIRALAX [Concomitant]
  11. DECADRON [Concomitant]
  12. SANCUSO [Concomitant]

REACTIONS (3)
  - DECREASED APPETITE [None]
  - MUSCULAR WEAKNESS [None]
  - DEHYDRATION [None]
